FAERS Safety Report 7887824-3 (Version None)
Quarter: 2011Q4

REPORT INFORMATION
  Report Type: 
  Country: None (occurrence: None)
  Receive Date: 20111101
  Receipt Date: 20111021
  Transmission Date: 20120403
  Serious: Yes (Life-Threatening, Hospitalization, Other)
  Sender: FDA-Public Use
  Company Number: AUR-APL-2011-05534

PATIENT
  Age: 51 Year
  Sex: Male

DRUGS (2)
  1. METFORMIN HCL [Suspect]
     Indication: PRODUCT USED FOR UNKNOWN INDICATION
  2. OXYCODONE/ACETAMINOPHEN (OXYCOCET) [Concomitant]

REACTIONS (11)
  - BLOOD LACTIC ACID INCREASED [None]
  - BLOOD GLUCOSE DECREASED [None]
  - BLOOD CREATININE INCREASED [None]
  - INCORRECT DOSE ADMINISTERED [None]
  - CONTINUOUS HAEMODIAFILTRATION [None]
  - DIABETIC NEUROPATHY [None]
  - ACIDOSIS [None]
  - INAPPROPRIATE SCHEDULE OF DRUG ADMINISTRATION [None]
  - BLOOD PRESSURE DECREASED [None]
  - DRUG LEVEL INCREASED [None]
  - UNRESPONSIVE TO STIMULI [None]
